FAERS Safety Report 13550949 (Version 2)
Quarter: 2017Q2

REPORT INFORMATION
  Report Type: Spontaneous
  Country: US (occurrence: US)
  Receive Date: 20170516
  Receipt Date: 20170519
  Transmission Date: 20170830
  Serious: Yes (Hospitalization, Other)
  Sender: FDA-Public Use
  Company Number: US-SUNOVION-2017SUN002028

PATIENT
  Sex: Male

DRUGS (2)
  1. LATUDA [Suspect]
     Active Substance: LURASIDONE HYDROCHLORIDE
     Indication: SCHIZOAFFECTIVE DISORDER
     Dosage: 80 MG, BID
     Route: 048
     Dates: end: 20170507
  2. LATUDA [Suspect]
     Active Substance: LURASIDONE HYDROCHLORIDE
     Indication: BIPOLAR DISORDER

REACTIONS (10)
  - Memory impairment [Unknown]
  - Dementia with Lewy bodies [Unknown]
  - Movement disorder [Recovered/Resolved]
  - Fall [Unknown]
  - Tremor [Recovered/Resolved]
  - Cogwheel rigidity [Unknown]
  - Hallucination [Recovered/Resolved]
  - Psychotic disorder [Unknown]
  - Confusional state [Unknown]
  - Gait disturbance [Recovered/Resolved]
